FAERS Safety Report 5500373-2 (Version None)
Quarter: 2007Q4

REPORT INFORMATION
  Report Type: 
  Country: None (occurrence: None)
  Receive Date: 20071025
  Receipt Date: 20071011
  Transmission Date: 20080405
  Serious: Yes (Hospitalization)
  Sender: FDA-Public Use
  Company Number: AZAIT200700351

PATIENT
  Age: 84 Year
  Sex: Male
  Weight: 66 kg

DRUGS (2)
  1. AZACITIDINE (AZACITIDINE) (INJECTION) [Suspect]
     Indication: MYELODYSPLASTIC SYNDROME
     Dosage: (37.5 MG/M2, DAILY X 7 DAYS), SUBCUTANEOUS
     Route: 058
     Dates: start: 20070829, end: 20070904
  2. NITRATE THERAPY [Concomitant]

REACTIONS (4)
  - ANGINA PECTORIS [None]
  - CONFUSIONAL STATE [None]
  - PLEURAL EFFUSION [None]
  - SUBILEUS [None]
